FAERS Safety Report 6804026-X (Version None)
Quarter: 2010Q2

REPORT INFORMATION
  Report Type: 
  Country: None (occurrence: None)
  Receive Date: 20100628
  Receipt Date: 20061106
  Transmission Date: 20101027
  Serious: Yes (Other)
  Sender: FDA-Public Use
  Company Number: US-PFIZER INC-2006136164

PATIENT
  Sex: Male
  Weight: 86.18 kg

DRUGS (2)
  1. SUTENT [Suspect]
     Indication: RENAL CELL CARCINOMA
     Route: 048
     Dates: start: 20060801
  2. PRILOSEC [Concomitant]

REACTIONS (3)
  - DRY SKIN [None]
  - HYPERTENSION [None]
  - SKIN EXFOLIATION [None]
